FAERS Safety Report 9210665 (Version 1)
Quarter: 2013Q2

REPORT INFORMATION
  Report Type: Spontaneous
  Country: US (occurrence: US)
  Receive Date: 20130404
  Receipt Date: 20130404
  Transmission Date: 20140414
  Serious: Yes (Hospitalization)
  Sender: FDA-Public Use
  Company Number: US-GLAXOSMITHKLINE-A0833061A

PATIENT
  Sex: Male

DRUGS (1)
  1. AVANDIA [Suspect]
     Indication: DIABETES MELLITUS
     Route: 048

REACTIONS (7)
  - Cardiovascular disorder [Unknown]
  - Cardiac failure congestive [Unknown]
  - Activities of daily living impaired [Unknown]
  - Dyspnoea [Unknown]
  - Fatigue [Unknown]
  - Sleep apnoea syndrome [Unknown]
  - Ill-defined disorder [Unknown]
